FAERS Safety Report 23118168 (Version 3)
Quarter: 2023Q4

REPORT INFORMATION
  Report Type: Spontaneous
  Country: BR (occurrence: BR)
  Receive Date: 20231027
  Receipt Date: 20231107
  Transmission Date: 20240109
  Serious: Yes (Other)
  Sender: FDA-Public Use
  Company Number: BR-009507513-2310BRA010478

PATIENT
  Age: 45 Year
  Sex: Male
  Weight: 82 kg

DRUGS (9)
  1. JANUMET [Suspect]
     Active Substance: METFORMIN HYDROCHLORIDE\SITAGLIPTIN PHOSPHATE
     Indication: Type 2 diabetes mellitus
     Dosage: 50/1000MG (1 TABLET AFTER BREAKFAST AND OTHER AFTER LUNCH)
     Route: 048
     Dates: start: 20211105
  2. JANUMET [Suspect]
     Active Substance: METFORMIN HYDROCHLORIDE\SITAGLIPTIN PHOSPHATE
     Dosage: 50/1000MG (1 TABLET AFTER BREAKFAST AND OTHER AFTER LUNCH)
     Route: 048
     Dates: start: 202112
  3. ZOLPIDEM [Suspect]
     Active Substance: ZOLPIDEM TARTRATE
     Indication: Insomnia
     Dosage: 1 TABLET QD, IF DOESN^T SLEEP, TAKE ANOTHER TABLET
     Route: 048
     Dates: start: 2019
  4. GLICLAZIDE [Concomitant]
     Active Substance: GLICLAZIDE
     Indication: Type 2 diabetes mellitus
     Dosage: 60 MG (2 TABLETS OF 30 MG)
     Route: 048
     Dates: start: 201802, end: 202111
  5. GLICLAZIDE [Concomitant]
     Active Substance: GLICLAZIDE
     Dosage: 60 MG, TID (1 TABLET AFTER BREAKFAST, 1 TABLET AFTER LUNCH AND 1 TABLET AFTER DINNER)
     Route: 048
     Dates: start: 202111
  6. ATORVASTATIN CALCIUM [Concomitant]
     Active Substance: ATORVASTATIN CALCIUM
     Indication: Blood cholesterol abnormal
     Dosage: 1 TABLET AFTER DINNER
     Route: 048
  7. ATORVASTATIN CALCIUM [Concomitant]
     Active Substance: ATORVASTATIN CALCIUM
     Indication: Blood triglycerides abnormal
     Dosage: 20 MILLIGRAM, QD
     Route: 048
     Dates: start: 201408, end: 202206
  8. SIMVASTATIN [Concomitant]
     Active Substance: SIMVASTATIN
     Indication: Blood cholesterol abnormal
     Dosage: 20 MILLIGRAM
     Route: 048
  9. SIMVASTATIN [Concomitant]
     Active Substance: SIMVASTATIN
     Indication: Blood triglycerides abnormal
     Dosage: 40 MILLIGRAM
     Route: 048

REACTIONS (11)
  - Polyneuropathy [Unknown]
  - Diabetes mellitus inadequate control [Unknown]
  - Sensory disturbance [Unknown]
  - Blood glucose abnormal [Unknown]
  - Drug ineffective [Unknown]
  - Vision blurred [Unknown]
  - Dry skin [Unknown]
  - Dizziness [Unknown]
  - Feeling abnormal [Unknown]
  - Weight decreased [Unknown]
  - Blood glucose abnormal [Unknown]

NARRATIVE: CASE EVENT DATE: 20211101
